FAERS Safety Report 21735665 (Version 1)
Quarter: 2022Q4

REPORT INFORMATION
  Report Type: Report from Study
  Country: FR (occurrence: FR)
  Receive Date: 20221215
  Receipt Date: 20221215
  Transmission Date: 20230112
  Serious: Yes (Other)
  Sender: FDA-Public Use
  Company Number: FR-CELGENE-FRA-20210901558

PATIENT
  Age: 60 Year
  Sex: Female
  Weight: 87 kg

DRUGS (2)
  1. LENALIDOMIDE [Suspect]
     Active Substance: LENALIDOMIDE
     Indication: Follicular lymphoma
     Route: 048
     Dates: start: 20141013, end: 20160425
  2. MABTHERA [Concomitant]
     Active Substance: RITUXIMAB
     Indication: Lymphoma
     Dates: start: 20141023, end: 20170208

REACTIONS (1)
  - Lung adenocarcinoma [Recovered/Resolved]

NARRATIVE: CASE EVENT DATE: 20210302
